FAERS Safety Report 8110838-5 (Version None)
Quarter: 2012Q1

REPORT INFORMATION
  Report Type: 
  Country: None (occurrence: None)
  Receive Date: 20120203
  Receipt Date: 20120127
  Transmission Date: 20120608
  Serious: Yes (Hospitalization, Other)
  Sender: FDA-Public Use
  Company Number: US-BAYER-2011-038756

PATIENT
  Age: 18 Year
  Sex: Female

DRUGS (12)
  1. METHOCARBAMOL [Concomitant]
     Dosage: 500 MG, UNK
  2. IBUPROFEN [Concomitant]
     Dosage: 600 MG, UNK
  3. DROSPIRENONE AND ETHINYL ESTRADIOL [Suspect]
     Indication: POLYCYSTIC OVARIES
     Dosage: UNK
     Dates: start: 20030101, end: 20110101
  4. CITALOPRAM HYDROBROMIDE [Concomitant]
     Dosage: 40 MG, UNK
  5. YAZ [Suspect]
     Indication: POLYCYSTIC OVARIES
     Dosage: UNK
     Dates: start: 20030101, end: 20110101
  6. SPIRONOLACTONE [Concomitant]
     Indication: POLYCYSTIC OVARIES
     Dosage: UNK
     Dates: start: 20090101, end: 20110101
  7. ACETAMINOPHEN [Concomitant]
  8. DIAZEPAM [Concomitant]
     Dosage: 5 MG, UNK
  9. SKELAXIN [Concomitant]
     Dosage: 800 MG, UNK
  10. METFORMIN HCL [Concomitant]
     Indication: TYPE 2 DIABETES MELLITUS
     Dosage: UNK
     Dates: start: 20070101, end: 20110101
  11. OXCARBAZEPINE [Concomitant]
     Dosage: 300 MG, UNK
  12. YASMIN [Suspect]
     Indication: POLYCYSTIC OVARIES
     Dosage: UNK
     Dates: start: 20030101, end: 20110101

REACTIONS (6)
  - ANHEDONIA [None]
  - GALLBLADDER DISORDER [None]
  - GALLBLADDER INJURY [None]
  - ANXIETY [None]
  - PAIN [None]
  - INJURY [None]
